FAERS Safety Report 25247060 (Version 1)
Quarter: 2025Q2

REPORT INFORMATION
  Report Type: Spontaneous
  Country: IT (occurrence: IT)
  Receive Date: 20250428
  Receipt Date: 20250428
  Transmission Date: 20250716
  Serious: Yes (Life-Threatening, Hospitalization)
  Sender: MYLAN
  Company Number: None

PATIENT
  Age: 87 Year
  Sex: Female

DRUGS (28)
  1. CARDURA [Suspect]
     Active Substance: DOXAZOSIN MESYLATE
     Indication: Product used for unknown indication
  2. CARDURA [Suspect]
     Active Substance: DOXAZOSIN MESYLATE
     Route: 048
  3. CARDURA [Suspect]
     Active Substance: DOXAZOSIN MESYLATE
     Route: 048
  4. CARDURA [Suspect]
     Active Substance: DOXAZOSIN MESYLATE
  5. ALLOPURINOL [Suspect]
     Active Substance: ALLOPURINOL
     Indication: Hyperuricaemia
  6. ALLOPURINOL [Suspect]
     Active Substance: ALLOPURINOL
     Route: 048
  7. ALLOPURINOL [Suspect]
     Active Substance: ALLOPURINOL
     Route: 048
  8. ALLOPURINOL [Suspect]
     Active Substance: ALLOPURINOL
  9. EZETIMIBE\ROSUVASTATIN CALCIUM [Suspect]
     Active Substance: EZETIMIBE\ROSUVASTATIN CALCIUM
     Indication: Hypercholesterolaemia
     Dosage: 1 DOSAGE FORM, QD (ROSUMIBE 20/10 MG 1 CP (AS REPORTED) DAILY)
     Dates: start: 2020
  10. EZETIMIBE\ROSUVASTATIN CALCIUM [Suspect]
     Active Substance: EZETIMIBE\ROSUVASTATIN CALCIUM
     Dosage: 1 DOSAGE FORM, QD (ROSUMIBE 20/10 MG 1 CP (AS REPORTED) DAILY)
     Route: 048
     Dates: start: 2020
  11. EZETIMIBE\ROSUVASTATIN CALCIUM [Suspect]
     Active Substance: EZETIMIBE\ROSUVASTATIN CALCIUM
     Dosage: 1 DOSAGE FORM, QD (ROSUMIBE 20/10 MG 1 CP (AS REPORTED) DAILY)
     Route: 048
     Dates: start: 2020
  12. EZETIMIBE\ROSUVASTATIN CALCIUM [Suspect]
     Active Substance: EZETIMIBE\ROSUVASTATIN CALCIUM
     Dosage: 1 DOSAGE FORM, QD (ROSUMIBE 20/10 MG 1 CP (AS REPORTED) DAILY)
     Dates: start: 2020
  13. LASIX [Suspect]
     Active Substance: FUROSEMIDE
     Indication: Cardiac failure
  14. LASIX [Suspect]
     Active Substance: FUROSEMIDE
     Route: 048
  15. LASIX [Suspect]
     Active Substance: FUROSEMIDE
     Route: 048
  16. LASIX [Suspect]
     Active Substance: FUROSEMIDE
  17. AMLODIPINE BESYLATE\OLMESARTAN MEDOXOMIL [Suspect]
     Active Substance: AMLODIPINE BESYLATE\OLMESARTAN MEDOXOMIL
     Indication: Hypertension
  18. AMLODIPINE BESYLATE\OLMESARTAN MEDOXOMIL [Suspect]
     Active Substance: AMLODIPINE BESYLATE\OLMESARTAN MEDOXOMIL
     Route: 048
  19. AMLODIPINE BESYLATE\OLMESARTAN MEDOXOMIL [Suspect]
     Active Substance: AMLODIPINE BESYLATE\OLMESARTAN MEDOXOMIL
     Route: 048
  20. AMLODIPINE BESYLATE\OLMESARTAN MEDOXOMIL [Suspect]
     Active Substance: AMLODIPINE BESYLATE\OLMESARTAN MEDOXOMIL
  21. NEBIVOLOL HYDROCHLORIDE [Suspect]
     Active Substance: NEBIVOLOL HYDROCHLORIDE
     Indication: Cardiac failure
     Dosage: 1 DOSAGE FORM, QD (1 CP (AS REPORTED) DAILY)
  22. NEBIVOLOL HYDROCHLORIDE [Suspect]
     Active Substance: NEBIVOLOL HYDROCHLORIDE
     Dosage: 1 DOSAGE FORM, QD (1 CP (AS REPORTED) DAILY)
     Route: 048
  23. NEBIVOLOL HYDROCHLORIDE [Suspect]
     Active Substance: NEBIVOLOL HYDROCHLORIDE
     Dosage: 1 DOSAGE FORM, QD (1 CP (AS REPORTED) DAILY)
     Route: 048
  24. NEBIVOLOL HYDROCHLORIDE [Suspect]
     Active Substance: NEBIVOLOL HYDROCHLORIDE
     Dosage: 1 DOSAGE FORM, QD (1 CP (AS REPORTED) DAILY)
  25. ASPIRIN [Suspect]
     Active Substance: ASPIRIN
     Indication: Arteriosclerosis
  26. ASPIRIN [Suspect]
     Active Substance: ASPIRIN
     Route: 048
  27. ASPIRIN [Suspect]
     Active Substance: ASPIRIN
     Route: 048
  28. ASPIRIN [Suspect]
     Active Substance: ASPIRIN

REACTIONS (1)
  - Blood creatine phosphokinase increased [Not Recovered/Not Resolved]

NARRATIVE: CASE EVENT DATE: 20250412
